FAERS Safety Report 25268981 (Version 1)
Quarter: 2025Q2

REPORT INFORMATION
  Report Type: Spontaneous
  Country: US (occurrence: US)
  Receive Date: 20250505
  Receipt Date: 20250505
  Transmission Date: 20250717
  Serious: Yes (Hospitalization)
  Sender: SANOFI AVENTIS
  Company Number: US-SA-2025SA127915

PATIENT
  Age: 60 Year
  Sex: Female

DRUGS (1)
  1. CERDELGA [Suspect]
     Active Substance: ELIGLUSTAT
     Indication: Gaucher^s disease
     Dosage: 84 MG, BID
     Route: 048
     Dates: start: 201701

REACTIONS (3)
  - Gastrointestinal disorder [Unknown]
  - Weight decreased [Unknown]
  - Product dose omission in error [Unknown]

NARRATIVE: CASE EVENT DATE: 20250101
